FAERS Safety Report 10070091 (Version 2)
Quarter: 2014Q2

REPORT INFORMATION
  Report Type: Spontaneous
  Country: DE (occurrence: None)
  Receive Date: 20140408
  Receipt Date: 20140422
  Transmission Date: 20141212
  Serious: Yes (Hospitalization)
  Sender: FDA-Public Use
  Company Number: DE-20140064

PATIENT
  Age: 79 Year
  Sex: Female

DRUGS (1)
  1. DOTAREM (GADOTERIC ACID) [Suspect]
     Indication: NUCLEAR MAGNETIC RESONANCE IMAGING
     Route: 041
     Dates: start: 20140218, end: 20140218

REACTIONS (1)
  - Arthritis [None]
